FAERS Safety Report 18687070 (Version 1)
Quarter: 2020Q4

REPORT INFORMATION
  Report Type: Spontaneous
  Country: US (occurrence: US)
  Receive Date: 20201231
  Receipt Date: 20201231
  Transmission Date: 20210114
  Serious: Yes (Other)
  Sender: FDA-Public Use
  Company Number: US-SA-2020SA374439

PATIENT

DRUGS (1)
  1. ZANTAC [Suspect]
     Active Substance: RANITIDINE HYDROCHLORIDE
     Dosage: 150 MG, QD
     Dates: start: 200701, end: 201301

REACTIONS (3)
  - Prostate cancer stage II [Recovered/Resolved]
  - Bladder cancer stage IV [Not Recovered/Not Resolved]
  - Renal cancer stage IV [Recovered/Resolved]

NARRATIVE: CASE EVENT DATE: 20100101
